FAERS Safety Report 9397930 (Version 2)
Quarter: 2013Q3

REPORT INFORMATION
  Report Type: Spontaneous
  Country: DE (occurrence: None)
  Receive Date: 20130709
  Receipt Date: 20130930
  Transmission Date: 20140515
  Serious: Yes (Hospitalization, Disabling, Congenital Anomaly)
  Sender: FDA-Public Use
  Company Number: GER/GER/13/0030399

PATIENT
  Sex: Male
  Weight: 1.28 kg

DRUGS (5)
  1. CITALOPRAM (CITALOPRAM) [Suspect]
     Indication: PRODUCT USED FOR UNKNOWN INDICATION
     Dosage: 1 DOSAGE FORMS, 1 IN 1 D, TRANSPLACENTAL?
     Route: 064
  2. KATADOLON KAPSELN [Concomitant]
  3. TILIDIN (VALORON N? /00628301/) [Concomitant]
  4. PANTOPRAZOLE (PANTOPRAZOLE SODIUM SESQUIHYDRATE) [Concomitant]
  5. DIAZEPAM (DIAZEPAM) [Concomitant]

REACTIONS (5)
  - Congenital anomaly [None]
  - Congenital hydrocephalus [None]
  - Congenital pulmonary hypertension [None]
  - Limb reduction defect [None]
  - Maternal drugs affecting foetus [None]
